APPROVED DRUG PRODUCT: PROMETHAZINE HYDROCHLORIDE,PHENYLEPHRINE HYDROCHLORIDE W/CODEINE PHOSPHATE
Active Ingredient: CODEINE PHOSPHATE; PHENYLEPHRINE HYDROCHLORIDE; PROMETHAZINE HYDROCHLORIDE
Strength: 10MG/5ML;5MG/5ML;6.25MG/5ML
Dosage Form/Route: SYRUP;ORAL
Application: A200963 | Product #001 | TE Code: AA
Applicant: AMNEAL PHARMACEUTICALS
Approved: Aug 26, 2015 | RLD: No | RS: No | Type: RX